FAERS Safety Report 13196546 (Version 2)
Quarter: 2017Q1

REPORT INFORMATION
  Report Type: Spontaneous
  Country: IT (occurrence: IT)
  Receive Date: 20170208
  Receipt Date: 20170222
  Transmission Date: 20170428
  Serious: Yes (Hospitalization, Other)
  Sender: FDA-Public Use
  Company Number: IT-PFIZER INC-2017052877

PATIENT
  Age: 53 Year
  Sex: Male
  Weight: 82 kg

DRUGS (4)
  1. INLYTA [Suspect]
     Active Substance: AXITINIB
     Indication: RENAL CANCER
     Dosage: 10 MG, DAILY
     Route: 048
     Dates: start: 20161201
  2. ATORVASTATIN [Concomitant]
     Active Substance: ATORVASTATIN
     Dosage: 20 MG, UNK
  3. CANDESARTAN HCTZ [Concomitant]
     Active Substance: CANDESARTAN CILEXETIL\HYDROCHLOROTHIAZIDE
     Dosage: 1 DF, 1X/DAY
  4. CALCIUM SANDOZ /00060701/ [Concomitant]
     Active Substance: CALCIUM GLUCONATE
     Dosage: 1 DF, UNK

REACTIONS (3)
  - Transient ischaemic attack [Recovered/Resolved with Sequelae]
  - Aphasia [Recovered/Resolved with Sequelae]
  - Motor dysfunction [Recovered/Resolved with Sequelae]

NARRATIVE: CASE EVENT DATE: 20161225
